FAERS Safety Report 18461438 (Version 1)
Quarter: 2020Q4

REPORT INFORMATION
  Report Type: Spontaneous
  Country: US (occurrence: US)
  Receive Date: 20201104
  Receipt Date: 20201104
  Transmission Date: 20210114
  Serious: Yes (Other)
  Sender: FDA-Public Use
  Company Number: US-BAYER-2020-230298

PATIENT
  Age: 72 Year
  Sex: Male
  Weight: 64.85 kg

DRUGS (3)
  1. GOCOVRI [Suspect]
     Active Substance: AMANTADINE
     Dosage: 68.5 MG
     Route: 048
     Dates: start: 20191123
  2. MIRALAX [Suspect]
     Active Substance: POLYETHYLENE GLYCOL 3350
     Indication: CONSTIPATION
     Dosage: UNK
  3. KLOR-CON M20 [Suspect]
     Active Substance: POTASSIUM CHLORIDE

REACTIONS (8)
  - Insomnia [Unknown]
  - Dementia [Unknown]
  - Freezing phenomenon [Unknown]
  - Product dose omission issue [Unknown]
  - Hallucination [Unknown]
  - Benign prostatic hyperplasia [Unknown]
  - Confusional state [Unknown]
  - Parkinson^s disease [None]
